FAERS Safety Report 13444500 (Version 1)
Quarter: 2017Q2

REPORT INFORMATION
  Report Type: Spontaneous
  Country: AU (occurrence: AU)
  Receive Date: 20170414
  Receipt Date: 20170414
  Transmission Date: 20170830
  Serious: Yes (Life-Threatening, Hospitalization)
  Sender: FDA-Public Use
  Company Number: AU-GUERBET-AU-20170031

PATIENT
  Age: 64 Year
  Sex: Female

DRUGS (1)
  1. DOTAREM [Suspect]
     Active Substance: GADOTERATE MEGLUMINE
     Indication: NUCLEAR MAGNETIC RESONANCE IMAGING BRAIN
     Route: 042
     Dates: start: 20170405, end: 20170405

REACTIONS (6)
  - Burning sensation [Recovered/Resolved]
  - Incontinence [Recovered/Resolved]
  - Loss of consciousness [Recovered/Resolved]
  - Foaming at mouth [Recovered/Resolved]
  - Heart rate increased [Recovered/Resolved]
  - Pharyngeal oedema [Recovered/Resolved]

NARRATIVE: CASE EVENT DATE: 20170405
